FAERS Safety Report 4960140-5 (Version None)
Quarter: 2006Q1

REPORT INFORMATION
  Report Type: 
  Country: None (occurrence: None)
  Receive Date: 20060328
  Receipt Date: 20060315
  Transmission Date: 20060701
  Serious: Yes (Other)
  Sender: FDA-Public Use
  Company Number: 2006011649

PATIENT
  Age: 77 Year
  Sex: Male
  Weight: 97.0698 kg

DRUGS (12)
  1. NEURONTIN [Suspect]
     Indication: ILL-DEFINED DISORDER
     Dosage: 900 MG (300 MG, 3 IN 1D), ORAL
     Route: 048
     Dates: start: 20010101, end: 20010101
  2. DARVOCET [Suspect]
     Indication: ILL-DEFINED DISORDER
  3. HYDROCODONE BITARTRATE [Suspect]
     Indication: ILL-DEFINED DISORDER
  4. CARDIAC THERAPY (CARDIAC THERAPY) [Concomitant]
  5. LIPITOR [Concomitant]
  6. LANOXIN [Concomitant]
  7. DIAZEPAM [Concomitant]
  8. METOPROLOL (METOPROLOL) [Concomitant]
  9. HYDROCODONE BITARTRATE + ACETAMINOPHEN [Concomitant]
  10. PLAVIX [Concomitant]
  11. LASIX [Concomitant]
  12. VALIUM [Concomitant]

REACTIONS (13)
  - ARTERIAL DISORDER [None]
  - ARTHRALGIA [None]
  - BACK PAIN [None]
  - BUTTOCK PAIN [None]
  - DEPRESSION [None]
  - DRUG HYPERSENSITIVITY [None]
  - DYSPHAGIA [None]
  - FEELING ABNORMAL [None]
  - LIVER DISORDER [None]
  - PERIPHERAL SENSORIMOTOR NEUROPATHY [None]
  - RENAL DISORDER [None]
  - SPEECH DISORDER [None]
  - UNEVALUABLE EVENT [None]
